FAERS Safety Report 6444217-3 (Version None)
Quarter: 2009Q4

REPORT INFORMATION
  Report Type: 
  Country: None (occurrence: None)
  Receive Date: 20091118
  Receipt Date: 20091110
  Transmission Date: 20100525
  Serious: Yes (Death, Other)
  Sender: FDA-Public Use
  Company Number: US-ROCHE-660798

PATIENT
  Sex: Female
  Weight: 65.3 kg

DRUGS (1)
  1. CAPECITABINE [Suspect]
     Indication: BREAST CANCER
     Route: 048
     Dates: start: 20080306, end: 20091001

REACTIONS (4)
  - ABDOMINAL PAIN UPPER [None]
  - DEATH [None]
  - PLATELET COUNT DECREASED [None]
  - PLEURAL EFFUSION [None]
